FAERS Safety Report 5392213-X (Version None)
Quarter: 2007Q3

REPORT INFORMATION
  Report Type: 
  Country: None (occurrence: None)
  Receive Date: 20070720
  Receipt Date: 20070710
  Transmission Date: 20080115
  Serious: Yes (Hospitalization, Other)
  Sender: FDA-Public Use
  Company Number: SE-JNJFOC-20070702343

PATIENT
  Age: 54 Year
  Sex: Male

DRUGS (5)
  1. REMICADE [Suspect]
     Indication: RHEUMATOID ARTHRITIS
     Dosage: DOSE BEGAN AT 0.2G EVERY 8 WEEKS AND WAS GRADUALLY RAISED TO 0.3G EVERY 6 WEEKS OVER A YEAR
     Route: 042
  2. METHOTREXATE [Concomitant]
     Route: 042
  3. METHOTREXATE [Concomitant]
     Indication: RHEUMATOID ARTHRITIS
     Route: 042
  4. PREDNISOLONE [Concomitant]
     Route: 048
  5. MOBIC [Concomitant]
     Route: 048

REACTIONS (2)
  - PHARYNGEAL ULCERATION [None]
  - STAPHYLOCOCCAL SKIN INFECTION [None]
